FAERS Safety Report 4924653-4 (Version None)
Quarter: 2006Q1

REPORT INFORMATION
  Report Type: 
  Country: None (occurrence: None)
  Receive Date: 20060222
  Receipt Date: 20060210
  Transmission Date: 20060701
  Serious: Yes (Hospitalization)
  Sender: FDA-Public Use
  Company Number: 2006-137560-NL

PATIENT
  Age: 45 Year
  Sex: Female

DRUGS (2)
  1. MARVELON [Suspect]
     Indication: CONTRACEPTION
     Dosage: DF ORAL
     Route: 048
     Dates: start: 20051217, end: 20060108
  2. MARVELON [Suspect]
     Indication: MENORRHAGIA
     Dosage: DF ORAL
     Route: 048
     Dates: start: 20051217, end: 20060108

REACTIONS (8)
  - BLOOD PRESSURE INCREASED [None]
  - PLEURISY [None]
  - PNEUMONIA [None]
  - PULMONARY ARTERY THROMBOSIS [None]
  - PULMONARY EMBOLISM [None]
  - RAYNAUD'S PHENOMENON [None]
  - SJOGREN'S SYNDROME [None]
  - VENOUS THROMBOSIS LIMB [None]
